FAERS Safety Report 10908125 (Version 3)
Quarter: 2015Q2

REPORT INFORMATION
  Report Type: Spontaneous
  Country: US (occurrence: US)
  Receive Date: 20150312
  Receipt Date: 20150428
  Transmission Date: 20150821
  Serious: Yes (Death)
  Sender: FDA-Public Use
  Company Number: US-CELGENE-USA-2015032203

PATIENT
  Age: 87 Year
  Sex: Male

DRUGS (2)
  1. REVLIMID [Suspect]
     Active Substance: LENALIDOMIDE
     Route: 048
     Dates: start: 201311
  2. REVLIMID [Suspect]
     Active Substance: LENALIDOMIDE
     Indication: MYELODYSPLASTIC SYNDROME
     Route: 048
     Dates: start: 201310

REACTIONS (5)
  - Myelodysplastic syndrome [Fatal]
  - Sepsis [Fatal]
  - Respiratory failure [Fatal]
  - Pneumonia [Fatal]
  - Renal failure [Fatal]

NARRATIVE: CASE EVENT DATE: 20140222
